FAERS Safety Report 4434317-1 (Version None)
Quarter: 2004Q3

REPORT INFORMATION
  Report Type: 
  Country: None (occurrence: None)
  Receive Date: 20040825
  Receipt Date: 20040726
  Transmission Date: 20050211
  Serious: Yes (Other)
  Sender: FDA-Public Use
  Company Number: M2004.1089

PATIENT
  Age: 68 Year
  Sex: Female

DRUGS (2)
  1. CIPROFLOXACIN [Suspect]
     Indication: URINARY TRACT INFECTION
     Dosage: 1 G, PO
     Route: 048
  2. LOW MOLECULAR HEPARIN [Concomitant]

REACTIONS (6)
  - ALVEOLITIS ALLERGIC [None]
  - DRUG HYPERSENSITIVITY [None]
  - GRANULOMA [None]
  - INTERSTITIAL LUNG DISEASE [None]
  - PNEUMONITIS [None]
  - RESPIRATORY FAILURE [None]
